FAERS Safety Report 5241082-7 (Version None)
Quarter: 2007Q1

REPORT INFORMATION
  Report Type: 
  Country: None (occurrence: None)
  Receive Date: 20070214
  Receipt Date: 20070214
  Transmission Date: 20070707
  Serious: Yes (Hospitalization)
  Sender: FDA-Public Use
  Company Number: None

PATIENT
  Age: 49 Year
  Sex: Male

DRUGS (7)
  1. LISINOPRIL [Suspect]
     Indication: HYPERTENSION
     Dates: start: 20060622, end: 20061011
  2. TYLENOL III [Concomitant]
  3. ASPIRIN [Concomitant]
  4. FELODIPINE [Concomitant]
  5. HYDROCHLOROTHIAZIDE [Concomitant]
  6. NITROGLYCERIN [Concomitant]
  7. SIMVASTATIN [Concomitant]

REACTIONS (2)
  - LIP PAIN [None]
  - LIP SWELLING [None]
